FAERS Safety Report 17923785 (Version 1)
Quarter: 2020Q2

REPORT INFORMATION
  Report Type: Spontaneous
  Country: US (occurrence: US)
  Receive Date: 20200622
  Receipt Date: 20200622
  Transmission Date: 20200714
  Serious: No
  Sender: FDA-Public Use
  Company Number: None

PATIENT
  Age: 53 Year
  Sex: Male
  Weight: 95.7 kg

DRUGS (7)
  1. ACETAMINOPHEN. [Concomitant]
     Active Substance: ACETAMINOPHEN
  2. LOVENOX [Concomitant]
     Active Substance: ENOXAPARIN SODIUM
  3. ALBUTEROL HFA [Concomitant]
     Active Substance: ALBUTEROL SULFATE
  4. SOLU-MEDROL [Concomitant]
     Active Substance: METHYLPREDNISOLONE SODIUM SUCCINATE
  5. REMDESIVIR. [Suspect]
     Active Substance: REMDESIVIR
     Indication: COVID-19
     Route: 042
     Dates: start: 20200618, end: 20200622
  6. ROBITUSSIN AC [Concomitant]
  7. LASIX [Concomitant]
     Active Substance: FUROSEMIDE

REACTIONS (1)
  - Liver function test increased [None]

NARRATIVE: CASE EVENT DATE: 20200622
